FAERS Safety Report 14992150 (Version 2)
Quarter: 2018Q2

REPORT INFORMATION
  Report Type: Spontaneous
  Country: US (occurrence: US)
  Receive Date: 20180608
  Receipt Date: 20180612
  Transmission Date: 20180711
  Serious: Yes (Life-Threatening, Other)
  Sender: FDA-Public Use
  Company Number: US-PFIZER INC-2018237217

PATIENT
  Age: 68 Year
  Sex: Female
  Weight: 104.3 kg

DRUGS (42)
  1. ZEGERID [Suspect]
     Active Substance: OMEPRAZOLE\SODIUM BICARBONATE
     Route: 065
  2. RANITIDINE. [Suspect]
     Active Substance: RANITIDINE
     Indication: GASTROOESOPHAGEAL REFLUX DISEASE
     Dosage: 150 MG
     Route: 065
     Dates: start: 2013, end: 2014
  3. ZANTAC [Concomitant]
     Active Substance: RANITIDINE HYDROCHLORIDE
     Indication: GASTROOESOPHAGEAL REFLUX DISEASE
     Dosage: 150 MG, UNK
  4. ZITHROMAX [Concomitant]
     Active Substance: AZITHROMYCIN DIHYDRATE
  5. METHYLPREDNISOLONE. [Concomitant]
     Active Substance: METHYLPREDNISOLONE
  6. BUMETANIDE. [Concomitant]
     Active Substance: BUMETANIDE
  7. COLCHICINE. [Concomitant]
     Active Substance: COLCHICINE
  8. DOXYCYCLINE. [Concomitant]
     Active Substance: DOXYCYCLINE
  9. PRILOSEC [Suspect]
     Active Substance: OMEPRAZOLE MAGNESIUM
     Route: 048
  10. VITAMIN D [Concomitant]
     Active Substance: CHOLECALCIFEROL
     Indication: HYPERSENSITIVITY
  11. FUROSEMIDE. [Concomitant]
     Active Substance: FUROSEMIDE
  12. CELEBREX [Concomitant]
     Active Substance: CELECOXIB
     Indication: ARTHRALGIA
  13. ASPIRIN. [Concomitant]
     Active Substance: ASPIRIN
  14. AZITHROMYCIN ANHYDROUS. [Concomitant]
     Active Substance: AZITHROMYCIN ANHYDROUS
  15. CLARITHROMYCIN. [Concomitant]
     Active Substance: CLARITHROMYCIN
  16. METAXALONE. [Concomitant]
     Active Substance: METAXALONE
  17. MELOXICAM. [Concomitant]
     Active Substance: MELOXICAM
  18. NEXIUM 24HR [Suspect]
     Active Substance: ESOMEPRAZOLE MAGNESIUM
     Route: 048
  19. PROTONIX [Suspect]
     Active Substance: PANTOPRAZOLE SODIUM
     Route: 065
  20. PREVACID [Suspect]
     Active Substance: LANSOPRAZOLE
     Route: 065
  21. TYLENOL [Concomitant]
     Active Substance: ACETAMINOPHEN
     Indication: PAIN
  22. LEVSIN [Concomitant]
     Active Substance: HYOSCYAMINE SULFATE
  23. PREDNISONE. [Concomitant]
     Active Substance: PREDNISONE
  24. HYDROCORTISONE. [Concomitant]
     Active Substance: HYDROCORTISONE
  25. ACETAMINOPHEN. [Concomitant]
     Active Substance: ACETAMINOPHEN
  26. ULTRAM [Concomitant]
     Active Substance: TRAMADOL HYDROCHLORIDE
     Indication: ARTHRALGIA
  27. LIDEX [Concomitant]
     Active Substance: FLUOCINONIDE
  28. SYNTHROID [Concomitant]
     Active Substance: LEVOTHYROXINE SODIUM
  29. SULFAMETHOXAZOLE [Concomitant]
     Active Substance: SULFAMETHOXAZOLE
  30. OXYCODONE [Concomitant]
     Active Substance: OXYCODONE
  31. NEXIUM [Suspect]
     Active Substance: ESOMEPRAZOLE MAGNESIUM
     Indication: GASTRIC PH DECREASED
     Dosage: UNK
     Route: 048
     Dates: start: 2009, end: 2014
  32. NEXIUM [Suspect]
     Active Substance: ESOMEPRAZOLE MAGNESIUM
     Indication: GASTROOESOPHAGEAL REFLUX DISEASE
  33. DEXILANT [Suspect]
     Active Substance: DEXLANSOPRAZOLE
     Route: 065
     Dates: start: 2017
  34. PEPCID OTC [Concomitant]
  35. FLAGYL [Concomitant]
     Active Substance: METRONIDAZOLE\METRONIDAZOLE HYDROCHLORIDE
  36. TRIMETHOPRIM. [Concomitant]
     Active Substance: TRIMETHOPRIM
  37. BENADRYL [Concomitant]
     Active Substance: DIPHENHYDRAMINE HYDROCHLORIDE
     Indication: HYPERSENSITIVITY
  38. KEFLEX [Concomitant]
     Active Substance: CEPHALEXIN
  39. CLINDAMYCIN. [Concomitant]
     Active Substance: CLINDAMYCIN
  40. NEXIUM [Suspect]
     Active Substance: ESOMEPRAZOLE MAGNESIUM
     Indication: GASTROOESOPHAGEAL REFLUX DISEASE
     Dosage: 40 MG, UNK
     Route: 048
     Dates: start: 2010, end: 2015
  41. NEXIUM [Suspect]
     Active Substance: ESOMEPRAZOLE MAGNESIUM
     Indication: GASTRIC PH DECREASED
     Dosage: 40 MG, UNK
     Route: 048
     Dates: start: 20071225
  42. HYDROCHLOROTHIAZIDE. [Concomitant]
     Active Substance: HYDROCHLOROTHIAZIDE

REACTIONS (24)
  - Kawasaki^s disease [Unknown]
  - Nephrocalcinosis [Unknown]
  - Nephrotic syndrome [Unknown]
  - Renal impairment [Unknown]
  - Rhabdomyolysis [Unknown]
  - Granulomatosis with polyangiitis [Unknown]
  - Obesity [Unknown]
  - Acute kidney injury [Unknown]
  - Congenital renal disorder [Unknown]
  - Hypertension [Unknown]
  - Toxoplasmosis [Unknown]
  - Chronic kidney disease [Unknown]
  - End stage renal disease [Unknown]
  - Pyelonephritis [Unknown]
  - Urethral stenosis [Unknown]
  - Constipation [Unknown]
  - Kidney infection [Unknown]
  - Tubulointerstitial nephritis [Unknown]
  - Sarcoidosis [Unknown]
  - Gout [Unknown]
  - Renal failure [Unknown]
  - Hypokalaemia [Unknown]
  - Hypocalcaemia [Unknown]
  - Hypomagnesaemia [Unknown]

NARRATIVE: CASE EVENT DATE: 2012
